FAERS Safety Report 15143969 (Version 2)
Quarter: 2018Q3

REPORT INFORMATION
  Report Type: Spontaneous
  Country: IT (occurrence: IT)
  Receive Date: 20180713
  Receipt Date: 20180717
  Transmission Date: 20181010
  Serious: Yes (Other)
  Sender: FDA-Public Use
  Company Number: IT-PFIZER INC-2018280036

PATIENT
  Age: 26 Year
  Sex: Male
  Weight: 112 kg

DRUGS (7)
  1. LEVETIRACETAM. [Concomitant]
     Active Substance: LEVETIRACETAM
     Dosage: CONCENTRATION: 1000 MG
  2. RISPERIDONE. [Concomitant]
     Active Substance: RISPERIDONE
     Dosage: UNK
  3. CARBAMAZEPINE. [Concomitant]
     Active Substance: CARBAMAZEPINE
     Dosage: UNK
  4. VALPROATE SODIUM. [Concomitant]
     Active Substance: VALPROATE SODIUM
     Dosage: UNK
  5. LEVETIRACETAM. [Concomitant]
     Active Substance: LEVETIRACETAM
     Dosage: CONCENTRATION: 500 MG
  6. PANTOPRAZOLE [Suspect]
     Active Substance: PANTOPRAZOLE
     Indication: GASTRITIS
     Dosage: 40 MG, QD
     Route: 065
  7. TOPIRAMATE. [Concomitant]
     Active Substance: TOPIRAMATE
     Dosage: UNK

REACTIONS (1)
  - Epilepsy [Unknown]

NARRATIVE: CASE EVENT DATE: 20180416
